FAERS Safety Report 6744711-1 (Version None)
Quarter: 2010Q2

REPORT INFORMATION
  Report Type: 
  Country: None (occurrence: None)
  Receive Date: 20100526
  Receipt Date: 20100526
  Transmission Date: 20101027
  Serious: Yes (Hospitalization)
  Sender: FDA-Public Use
  Company Number: None

PATIENT
  Age: 57 Year
  Sex: Male
  Weight: 89.3586 kg

DRUGS (4)
  1. METHOTREXATE [Suspect]
  2. DOXORUBICIN HCL [Suspect]
  3. VINBLASTINE SULFATE [Suspect]
  4. CISPLATIN [Suspect]

REACTIONS (1)
  - BACTERAEMIA [None]
